FAERS Safety Report 19865849 (Version 1)
Quarter: 2021Q3

REPORT INFORMATION
  Report Type: Report from Study
  Country: CA (occurrence: CA)
  Receive Date: 20210921
  Receipt Date: 20210921
  Transmission Date: 20211014
  Serious: Yes (Other)
  Sender: FDA-Public Use
  Company Number: CA-TAKEDA-2021TUS057633

PATIENT
  Age: 78 Year
  Sex: Male

DRUGS (6)
  1. IRBESARTAN. [Concomitant]
     Active Substance: IRBESARTAN
     Dosage: UNK
  2. AMLODIPINE [Concomitant]
     Active Substance: AMLODIPINE BESYLATE
     Dosage: UNK
  3. VEDOLIZUMAB [Suspect]
     Active Substance: VEDOLIZUMAB
     Indication: COLITIS ULCERATIVE
     Dosage: 300 MILLIGRAM
     Route: 042
     Dates: start: 20210326
  4. ASA [Concomitant]
     Active Substance: ASPIRIN
     Dosage: UNK
  5. ASACOL [Concomitant]
     Active Substance: MESALAMINE
     Dosage: UNK
  6. ROSUVASTATIN. [Concomitant]
     Active Substance: ROSUVASTATIN
     Dosage: UNK

REACTIONS (1)
  - Colitis ulcerative [Not Recovered/Not Resolved]
